FAERS Safety Report 15215182 (Version 1)
Quarter: 2018Q3

REPORT INFORMATION
  Report Type: Spontaneous
  Country: US (occurrence: US)
  Receive Date: 20180703
  Receipt Date: 20180703
  Transmission Date: 20181010
  Serious: Yes (Death)
  Sender: FDA-Public Use
  Company Number: None

PATIENT
  Age: 82 Year
  Sex: Male
  Weight: 55.8 kg

DRUGS (4)
  1. TEMOZOLOMIDE 20MG [Concomitant]
     Active Substance: TEMOZOLOMIDE
     Dates: start: 20180413, end: 20180702
  2. TEMOZOLOMIDE. [Suspect]
     Active Substance: TEMOZOLOMIDE
     Indication: BRAIN NEOPLASM MALIGNANT
     Route: 048
     Dates: start: 20180413, end: 20180702
  3. TEMOZOLOMIDE 100MG [Concomitant]
     Active Substance: TEMOZOLOMIDE
     Dates: start: 20180413, end: 20180702
  4. TEMOZOLOMIDE 5MG [Concomitant]
     Active Substance: TEMOZOLOMIDE
     Dates: start: 20180413, end: 20180702

REACTIONS (1)
  - Disease progression [None]

NARRATIVE: CASE EVENT DATE: 20180702
